FAERS Safety Report 9341092 (Version 2)
Quarter: 2013Q4

REPORT INFORMATION
  Report Type: Spontaneous
  Country: RU (occurrence: RU)
  Receive Date: 20130610
  Receipt Date: 20131029
  Transmission Date: 20140711
  Serious: Yes (Hospitalization, Other)
  Sender: FDA-Public Use
  Company Number: RU-US-EMD SERONO, INC.-7198068

PATIENT
  Age: 28 Year
  Sex: Female

DRUGS (4)
  1. OVITRELLE [Suspect]
     Indication: OVULATION INDUCTION
     Route: 058
     Dates: start: 20130205, end: 20130205
  2. GONAL-F [Suspect]
     Indication: OVULATION INDUCTION
     Route: 058
     Dates: start: 20130128, end: 20130129
  3. GONAL-F [Suspect]
     Route: 058
     Dates: start: 20130130, end: 20130203
  4. UTROGESTAN [Concomitant]
     Indication: LUTEAL PHASE DEFICIENCY
     Dosage: 100 TO 200MG TWICE A DAY
     Route: 067
     Dates: start: 20130207, end: 20130219

REACTIONS (4)
  - Multiple pregnancy [Recovered/Resolved]
  - Haemorrhage in pregnancy [Recovered/Resolved]
  - Abortion spontaneous [Recovered/Resolved]
  - Ovarian hyperstimulation syndrome [Recovered/Resolved]
